FAERS Safety Report 5969378-1 (Version None)
Quarter: 2008Q4

REPORT INFORMATION
  Report Type: 
  Country: None (occurrence: None)
  Receive Date: 20081126
  Receipt Date: 20081119
  Transmission Date: 20090506
  Serious: Yes (Other)
  Sender: FDA-Public Use
  Company Number: US-WATSON-2008-06896

PATIENT
  Age: 87 Year
  Sex: Male

DRUGS (2)
  1. HALOPERIDOL LACTATE (WATSON LABORATORIES) [Suspect]
     Indication: DEMENTIA ALZHEIMER'S TYPE
     Dosage: 1 MG, Q12H
     Route: 030
  2. HALOPERIDOL LACTATE (WATSON LABORATORIES) [Suspect]
     Dosage: 0.5 MG, PRN
     Route: 030

REACTIONS (1)
  - ELECTROCARDIOGRAM QT PROLONGED [None]
